FAERS Safety Report 17019778 (Version 1)
Quarter: 2019Q4

REPORT INFORMATION
  Report Type: Spontaneous
  Country: US (occurrence: US)
  Receive Date: 20191112
  Receipt Date: 20191112
  Transmission Date: 20200122
  Serious: No
  Sender: FDA-Public Use
  Company Number: US-BTG-201900148

PATIENT
  Age: 36 Year
  Sex: Male

DRUGS (2)
  1. CROFAB [Suspect]
     Active Substance: CROTALIDAE POLYVALENT IMMUNE FAB (OVINE)
     Indication: SNAKE BITE
     Dosage: 2 ADDITIONAL DOSES OF CROFAB  WITH EACH DOSE CONSISTING OF 6 VIALS OF CROFAB
     Route: 065
  2. CROFAB [Suspect]
     Active Substance: CROTALIDAE POLYVALENT IMMUNE FAB (OVINE)
     Indication: SNAKE BITE
     Dosage: 4 VIALS
     Route: 065
     Dates: start: 20190806

REACTIONS (4)
  - Fibrin D dimer increased [Unknown]
  - Platelet count decreased [Unknown]
  - Coagulation test abnormal [Unknown]
  - Blood fibrinogen decreased [Unknown]

NARRATIVE: CASE EVENT DATE: 20190806
